FAERS Safety Report 10210867 (Version 1)
Quarter: 2014Q2

REPORT INFORMATION
  Report Type: Spontaneous
  Country: US (occurrence: None)
  Receive Date: 20140528
  Receipt Date: 20140528
  Transmission Date: 20141212
  Serious: Yes (Hospitalization)
  Sender: FDA-Public Use
  Company Number: 2014P1004294

PATIENT
  Age: 67 Year
  Sex: Female
  Weight: 68.7 kg

DRUGS (1)
  1. NEOSTIGMINE METHYLSULFATE [Suspect]
     Indication: ANAESTHESIA REVERSAL
     Route: 042
     Dates: start: 20140509, end: 20140509

REACTIONS (2)
  - Respiratory distress [None]
  - Respiratory failure [None]
